FAERS Safety Report 15219505 (Version 2)
Quarter: 2018Q3

REPORT INFORMATION
  Report Type: Report from Study
  Country: CN (occurrence: CN)
  Receive Date: 20180731
  Receipt Date: 20180921
  Transmission Date: 20181010
  Serious: Yes (Hospitalization)
  Sender: FDA-Public Use
  Company Number: CN-ROCHE-2160132

PATIENT
  Age: 74 Year
  Sex: Male
  Weight: 88 kg

DRUGS (20)
  1. PANTOPRAZOLE SODIUM. [Concomitant]
     Active Substance: PANTOPRAZOLE SODIUM
     Route: 065
     Dates: start: 20180714, end: 20180716
  2. LEUCOGEN (ASPARAGINASE) [Concomitant]
     Dosage: FOR BLOOD RISE
     Route: 065
     Dates: start: 20180625, end: 20180710
  3. LEUCOGEN (ASPARAGINASE) [Concomitant]
     Route: 065
     Dates: start: 20180716
  4. RABEPRAZOLE SODIUM. [Concomitant]
     Active Substance: RABEPRAZOLE SODIUM
     Route: 065
     Dates: start: 20180716
  5. TROPISETRON HYDROCHLORIDE [Concomitant]
     Active Substance: TROPISETRON HYDROCHLORIDE
     Indication: VOMITING
     Route: 065
     Dates: start: 20180622, end: 20180625
  6. YIXUESHENG CAPSULE [Concomitant]
     Dosage: FOR INVOGORATING THE SPLEEN, ENRICHING THE KIDNEY AND ENRICHING THE BLOOD
     Route: 065
     Dates: start: 20180522
  7. APREPITANT. [Concomitant]
     Active Substance: APREPITANT
     Route: 065
     Dates: start: 20180714, end: 20180714
  8. METOCLOPRAMIDE DIHYDROCHLORIDE [Concomitant]
     Route: 065
     Dates: start: 20180714, end: 20180716
  9. PEMETREXED. [Suspect]
     Active Substance: PEMETREXED
     Indication: NON-SMALL CELL LUNG CANCER STAGE IV
     Dosage: FIRST DOSE ON 18/APR/2018 AT 995 MG?SECOND DOSE ON 08/MAY/2018 AT 990 MG?THIRD DOSE ON 31/MAY/2018 A
     Route: 042
     Dates: start: 20180418
  10. TROPISETRON HYDROCHLORIDE [Concomitant]
     Active Substance: TROPISETRON HYDROCHLORIDE
     Route: 065
     Dates: start: 20180714, end: 20180716
  11. METOCLOPRAMIDE DIHYDROCHLORIDE [Concomitant]
     Indication: VOMITING
     Route: 065
     Dates: start: 20180622, end: 20180625
  12. ATEZOLIZUMAB. [Suspect]
     Active Substance: ATEZOLIZUMAB
     Indication: NON-SMALL CELL LUNG CANCER STAGE IV
     Dosage: SECOND DOSE ON 08/MAY/2018 AT 1200 MG?THIRD DOSE ON 31/MAY/2018 AT 1200 MG?MOST RECENT DOSE OF ATEZO
     Route: 042
     Dates: start: 20180418
  13. APREPITANT. [Concomitant]
     Active Substance: APREPITANT
     Indication: VOMITING
     Route: 065
     Dates: start: 20180622, end: 20180624
  14. VITAMIN B6 [Concomitant]
     Active Substance: PYRIDOXINE HYDROCHLORIDE
     Indication: VOMITING
     Route: 065
     Dates: start: 20180622, end: 20180625
  15. CISPLATIN. [Suspect]
     Active Substance: CISPLATIN
     Indication: NON-SMALL CELL LUNG CANCER STAGE IV
     Dosage: FIRST DOSE ON 18/APR/2018 AT 140 MG?SECOND DOSE ON 08/MAY/2018 AT 140 MG?THIRD DOSE ON 31/MAY/2018 A
     Route: 042
     Dates: start: 20180418, end: 20180622
  16. VITAMIN B6 [Concomitant]
     Active Substance: PYRIDOXINE HYDROCHLORIDE
     Route: 065
     Dates: start: 20180714, end: 20180716
  17. AMBROXOL HYDROCHLORIDE [Concomitant]
     Active Substance: AMBROXOL HYDROCHLORIDE
     Indication: PRODUCTIVE COUGH
     Route: 065
     Dates: start: 20180622, end: 20180625
  18. AMBROXOL HYDROCHLORIDE [Concomitant]
     Active Substance: AMBROXOL HYDROCHLORIDE
     Route: 065
     Dates: start: 20180714, end: 20180716
  19. PLENDIL [Concomitant]
     Active Substance: FELODIPINE
  20. PANTOPRAZOLE SODIUM. [Concomitant]
     Active Substance: PANTOPRAZOLE SODIUM
     Dosage: FOR HYDROCHLORIC ACID IN GASTRIC JUICE
     Route: 065
     Dates: start: 20180622, end: 20180625

REACTIONS (1)
  - Neutrophil count decreased [Recovered/Resolved]

NARRATIVE: CASE EVENT DATE: 20180723
